FAERS Safety Report 25631716 (Version 4)
Quarter: 2025Q4

REPORT INFORMATION
  Report Type: Report from Study
  Country: GB (occurrence: GB)
  Receive Date: 20250801
  Receipt Date: 20251221
  Transmission Date: 20260118
  Serious: Yes (Hospitalization, Other)
  Sender: IPSEN BIOPHARMACEUTICALS, INC.
  Company Number: GB-IPSEN Group, Research and Development-2025-08119

PATIENT
  Age: 75 Year
  Sex: Female

DRUGS (3)
  1. LANREOTIDE ACETATE [Suspect]
     Active Substance: LANREOTIDE ACETATE
     Indication: Neuroendocrine tumour
     Dosage: DEEP SUBCUTANEOUS ROUTE, 120 MG/0.5 ML?EXPIRY DATE:-OCT-2027., 31-05-2028
     Route: 058
  2. LANREOTIDE ACETATE [Suspect]
     Active Substance: LANREOTIDE ACETATE
     Indication: Neoplasm malignant
  3. LANREOTIDE ACETATE [Suspect]
     Active Substance: LANREOTIDE ACETATE
     Indication: Off label use

REACTIONS (14)
  - Hospitalisation [Unknown]
  - Eyelid ptosis [Unknown]
  - Ocular hyperaemia [Unknown]
  - Myasthenia gravis [Recovering/Resolving]
  - Abdominal discomfort [Recovered/Resolved]
  - Flatulence [Recovered/Resolved]
  - Diarrhoea [Recovered/Resolved]
  - Product administered at inappropriate site [Unknown]
  - Ocular discomfort [Recovering/Resolving]
  - Asthenopia [Recovering/Resolving]
  - Vision blurred [Recovering/Resolving]
  - Refraction disorder [Recovering/Resolving]
  - Off label use [Unknown]
  - Fine motor skill dysfunction [Unknown]

NARRATIVE: CASE EVENT DATE: 20250101
